FAERS Safety Report 5961967-3 (Version None)
Quarter: 2008Q4

REPORT INFORMATION
  Report Type: 
  Country: None (occurrence: None)
  Receive Date: 20081121
  Receipt Date: 20081114
  Transmission Date: 20090506
  Serious: Yes (Other)
  Sender: FDA-Public Use
  Company Number: ES-ASTRAZENECA-2008AC02959

PATIENT
  Age: 77 Year
  Sex: Male

DRUGS (1)
  1. GOSERELIN [Suspect]
     Indication: PROSTATE CANCER
     Dates: start: 20051101, end: 20060901

REACTIONS (1)
  - CHOREA [None]
